FAERS Safety Report 7596665-6 (Version None)
Quarter: 2011Q3

REPORT INFORMATION
  Report Type: 
  Country: None (occurrence: None)
  Receive Date: 20110708
  Receipt Date: 20110627
  Transmission Date: 20111222
  Serious: Yes (Hospitalization, Other)
  Sender: FDA-Public Use
  Company Number: US-ELI_LILLY_AND_COMPANY-US200906003466

PATIENT
  Sex: Female

DRUGS (18)
  1. VITAMIN B [Concomitant]
  2. HYDROCHLOROTHIAZIDE [Concomitant]
     Dosage: 12.5 MG, UNKNOWN
  3. VITAMIN TAB [Concomitant]
  4. FORTEO [Suspect]
     Indication: OSTEOPOROSIS
     Dosage: 20 UG, QD
     Dates: start: 20090420, end: 20100401
  5. HUMALOG [Concomitant]
  6. FISH OIL [Concomitant]
  7. FORTEO [Suspect]
     Dosage: 20 UG, QD
     Dates: end: 20110601
  8. ENBREL [Concomitant]
     Dosage: 50 MG, WEEKLY (1/W)
  9. VITAMIN D [Concomitant]
  10. FLAXSEED OIL [Concomitant]
  11. ACIDOPHILIS [Concomitant]
  12. FORTEO [Suspect]
     Dosage: 20 UG, QD
     Dates: start: 20100601
  13. LIPITOR [Concomitant]
  14. LANTUS [Concomitant]
  15. CALCIUM CARBONATE [Concomitant]
  16. ASPIRIN [Concomitant]
  17. PLAVIX [Concomitant]
  18. AMLODIPINE [Concomitant]

REACTIONS (8)
  - CARPAL TUNNEL SYNDROME [None]
  - CEREBROVASCULAR ACCIDENT [None]
  - ASTHENIA [None]
  - PARAESTHESIA [None]
  - BLOOD PARATHYROID HORMONE INCREASED [None]
  - DYSGEUSIA [None]
  - HYPOAESTHESIA [None]
  - RENAL IMPAIRMENT [None]
